FAERS Safety Report 9012083 (Version 1)
Quarter: 2012Q4

REPORT INFORMATION
  Report Type: Spontaneous
  Country: DE (occurrence: None)
  Receive Date: 20121228
  Receipt Date: 20121228
  Transmission Date: 20130627
  Serious: Yes (Other)
  Sender: FDA-Public Use
  Company Number: 2012P1067381

PATIENT
  Sex: Female
  Weight: 70 kg

DRUGS (1)
  1. INFUMORPH [Suspect]

REACTIONS (2)
  - Device occlusion [None]
  - Pain [None]
